FAERS Safety Report 7310043-6 (Version None)
Quarter: 2011Q1

REPORT INFORMATION
  Report Type: 
  Country: None (occurrence: None)
  Receive Date: 20110224
  Receipt Date: 20110214
  Transmission Date: 20110831
  Serious: Yes (Hospitalization, Other)
  Sender: FDA-Public Use
  Company Number: PHHY2010US86588

PATIENT
  Sex: Female

DRUGS (12)
  1. HYDROCODONE [Concomitant]
     Dosage: 5 MG, Q12H
  2. NAPROXEN [Concomitant]
     Dosage: 500 MG, PRN
  3. EXTAVIA [Suspect]
     Dosage: 0.25 MG, QOD
     Route: 058
     Dates: start: 20101201
  4. TOPAMAX [Concomitant]
     Dosage: 50 MG, BID
  5. ZOLOFT [Concomitant]
     Dosage: 100 MG, BID
  6. MULTI-VITAMINS [Concomitant]
     Dosage: UNK
  7. EXTAVIA [Suspect]
     Indication: MULTIPLE SCLEROSIS
     Dosage: 0.187 MG, QOD
     Route: 058
     Dates: start: 20100801
  8. ADVIL LIQUI-GELS [Concomitant]
  9. EXTAVIA [Suspect]
     Dosage: 0.75 ML, QOD
     Route: 058
  10. KLONOPIN [Concomitant]
     Dosage: 0.5 MG, Q4-6H
  11. SINGULAIR [Concomitant]
     Dosage: 10 MG, QD
  12. DEPO-PROVERA [Concomitant]
     Dosage: SHOT EVERY 3 MONTHS

REACTIONS (16)
  - VIRAL INFECTION [None]
  - MULTIPLE SCLEROSIS RELAPSE [None]
  - PYREXIA [None]
  - NAUSEA [None]
  - INJECTION SITE ERYTHEMA [None]
  - INJECTION SITE HAEMATOMA [None]
  - INJECTION SITE PAIN [None]
  - MIGRAINE [None]
  - ABDOMINAL PAIN [None]
  - CHILLS [None]
  - PAIN [None]
  - HYPOKINESIA [None]
  - MUSCLE SPASMS [None]
  - HEADACHE [None]
  - PHOTOPHOBIA [None]
  - ARTHRALGIA [None]
